FAERS Safety Report 20207266 (Version 1)
Quarter: 2021Q4

REPORT INFORMATION
  Report Type: Spontaneous
  Country: US (occurrence: None)
  Receive Date: 20211219
  Receipt Date: 20211219
  Transmission Date: 20220303
  Serious: Yes (Hospitalization)
  Sender: FDA-Public Use
  Company Number: None

PATIENT
  Age: 77 Year
  Sex: Male
  Weight: 88 kg

DRUGS (3)
  1. ETODOLAC [Suspect]
     Active Substance: ETODOLAC
     Indication: Pain
     Dosage: FREQUENCY : DAILY;?
     Route: 048
     Dates: start: 20210205, end: 20211124
  2. ETODOLAC [Suspect]
     Active Substance: ETODOLAC
     Dosage: FREQUENCY : DAILY;?
     Route: 048
     Dates: start: 20200225, end: 20211124
  3. LISINOPRIL [Suspect]
     Active Substance: LISINOPRIL

REACTIONS (7)
  - Pain [None]
  - Chills [None]
  - Abdominal pain [None]
  - Pollakiuria [None]
  - Nephropathy toxic [None]
  - Acute kidney injury [None]
  - Urinary tract obstruction [None]

NARRATIVE: CASE EVENT DATE: 20211124
